FAERS Safety Report 4865401-6 (Version None)
Quarter: 2005Q4

REPORT INFORMATION
  Report Type: 
  Country: None (occurrence: None)
  Receive Date: 20051223
  Receipt Date: 20051115
  Transmission Date: 20060501
  Serious: Yes (Other)
  Sender: FDA-Public Use
  Company Number: ES-AMGEN-UK158085

PATIENT
  Age: 63 Year
  Sex: Female
  Weight: 69.5 kg

DRUGS (5)
  1. ARANESP [Suspect]
     Indication: ANAEMIA OF MALIGNANT DISEASE
     Route: 058
     Dates: start: 20050905, end: 20051104
  2. RITUXIMAB [Concomitant]
     Route: 042
     Dates: start: 20050905, end: 20050905
  3. CYCLOPHOSPHAMIDE [Concomitant]
     Route: 042
     Dates: start: 20050905, end: 20050905
  4. VINCRISTINE [Concomitant]
     Route: 042
     Dates: start: 20050905, end: 20050905
  5. PREDNISONE 50MG TAB [Concomitant]
     Route: 048
     Dates: start: 20050905, end: 20050905

REACTIONS (1)
  - APLASIA PURE RED CELL [None]
